FAERS Safety Report 9645283 (Version 2)
Quarter: 2013Q4

REPORT INFORMATION
  Report Type: Report from Study
  Country: AU (occurrence: AU)
  Receive Date: 20131025
  Receipt Date: 20131025
  Transmission Date: 20140711
  Serious: Yes (Other)
  Sender: FDA-Public Use
  Company Number: PHHY2011AU118429

PATIENT
  Age: 80 Year
  Sex: Female

DRUGS (3)
  1. ACLASTA [Suspect]
     Dosage: 5 MG, UNK
     Route: 042
  2. ACLASTA [Suspect]
     Dosage: 5 MG, UNK
     Route: 042
     Dates: start: 20100617
  3. ACLASTA [Suspect]
     Dosage: 5 UNK, UNK
     Route: 042
     Dates: start: 20111116

REACTIONS (2)
  - Gastrointestinal carcinoma [Unknown]
  - Thoracic vertebral fracture [Unknown]
